FAERS Safety Report 10722088 (Version 2)
Quarter: 2015Q1

REPORT INFORMATION
  Report Type: Spontaneous
  Country: US (occurrence: US)
  Receive Date: 20150119
  Receipt Date: 20150121
  Transmission Date: 20150721
  Serious: No
  Sender: FDA-Public Use
  Company Number: US-ASTRAZENECA-2014SE97762

PATIENT
  Age: 9 Year
  Sex: Male
  Weight: 36.3 kg

DRUGS (7)
  1. PULMICORT TURBUHALER [Suspect]
     Active Substance: BUDESONIDE
     Indication: ASTHMA
     Dosage: 1 PUFF BID
     Route: 055
     Dates: start: 20141106
  2. ALBUTEROL. [Concomitant]
     Active Substance: ALBUTEROL
     Indication: ASTHMA PROPHYLAXIS
     Route: 055
  3. NASONEX [Concomitant]
     Active Substance: MOMETASONE FUROATE
     Indication: NASOPHARYNGITIS
     Dosage: ONE SPRAY IN EACH NOSTRIL ONCE DAILY AS NEEDED
     Route: 045
  4. PULMICORT TURBUHALER [Suspect]
     Active Substance: BUDESONIDE
     Indication: ASTHMA
     Dosage: 2 PUFF BID
     Route: 055
  5. NASONEX [Concomitant]
     Active Substance: MOMETASONE FUROATE
     Indication: RHINORRHOEA
     Dosage: ONE SPRAY IN EACH NOSTRIL ONCE DAILY AS NEEDED
     Route: 045
  6. VENTOLIN [Concomitant]
     Active Substance: ALBUTEROL SULFATE
     Indication: ASTHMA PROPHYLAXIS
     Route: 055
  7. PULMICORT TURBUHALER [Suspect]
     Active Substance: BUDESONIDE
     Indication: ASTHMA
     Route: 055

REACTIONS (7)
  - Lower respiratory tract infection [Unknown]
  - Upper-airway cough syndrome [Unknown]
  - Cough [Unknown]
  - Throat irritation [Unknown]
  - Pyrexia [Unknown]
  - Feeling abnormal [Unknown]
  - Drug ineffective [Unknown]

NARRATIVE: CASE EVENT DATE: 201412
